FAERS Safety Report 13194702 (Version 1)
Quarter: 2017Q1

REPORT INFORMATION
  Report Type: Spontaneous
  Country: US (occurrence: US)
  Receive Date: 20170207
  Receipt Date: 20170207
  Transmission Date: 20170428
  Serious: No
  Sender: FDA-Public Use
  Company Number: US-JAZZ-2016-US-017742

PATIENT
  Sex: Female

DRUGS (1)
  1. PRIALT [Suspect]
     Active Substance: ZICONOTIDE ACETATE
     Indication: PAIN
     Dosage: 2.4 ?G, SINGLE (1 CC PRESERVATIVE FREE NROMAL SALINE)
     Route: 037
     Dates: start: 20160920, end: 20160920

REACTIONS (1)
  - Off label use [Unknown]
